FAERS Safety Report 6114696-X (Version None)
Quarter: 2009Q1

REPORT INFORMATION
  Report Type: 
  Country: None (occurrence: None)
  Receive Date: 20090311
  Receipt Date: 20080109
  Transmission Date: 20090719
  Serious: Yes (Hospitalization)
  Sender: FDA-Public Use
  Company Number: US200801002550

PATIENT
  Age: 82 Year
  Sex: Female
  Weight: 63.9 kg

DRUGS (12)
  1. GEMZAR [Suspect]
     Indication: LEIOMYOSARCOMA METASTATIC
     Dates: start: 20071101
  2. TAXOTERE [Concomitant]
  3. FORTEO [Concomitant]
  4. SNYTHROID (LEVOTHYROXINE SODIUM) [Concomitant]
  5. CITRACAL (CALCIUM CITRATE) [Concomitant]
  6. MONOPRIL [Concomitant]
  7. ASPIRIN [Concomitant]
  8. ALEVE (NAPROXEN SODIUM, PSUEDOEPHEDRINE HYDROCHLORIDE) [Concomitant]
  9. PREDNISONE TAB [Concomitant]
  10. ZANTAC 150 [Concomitant]
  11. NORVASC [Concomitant]
  12. LASIX [Concomitant]

REACTIONS (1)
  - CELLULITIS [None]
